FAERS Safety Report 12436695 (Version 3)
Quarter: 2016Q3

REPORT INFORMATION
  Report Type: Spontaneous
  Country: JP (occurrence: JP)
  Receive Date: 20160606
  Receipt Date: 20160702
  Transmission Date: 20161109
  Serious: Yes (Hospitalization, Other)
  Sender: FDA-Public Use
  Company Number: JP-ACCORD-041172

PATIENT
  Age: 60 Year
  Sex: Male

DRUGS (2)
  1. FLUOROURACIL. [Suspect]
     Active Substance: FLUOROURACIL
     Indication: OESOPHAGEAL CARCINOMA
     Dosage: RECEIVED CYCLICAL 800 MG/M2 ON DAYS 1-5, REPEATED EVERY 28 DAYS.??RECEIVED 02 CYCLE AS FP REGIMEN.
  2. CISPLATIN. [Concomitant]
     Active Substance: CISPLATIN
     Indication: OESOPHAGEAL CARCINOMA
     Dosage: RECEIVED CYCLICAL 80 MG/M2 ON DAY 01, REPEATED EVERY 28 DAYS.??RECEIVED 02 CYCLE AS FP REGIMEN.

REACTIONS (2)
  - Hyperammonaemia [Recovered/Resolved]
  - Hyponatraemia [Recovered/Resolved]

NARRATIVE: CASE EVENT DATE: 20131201
